FAERS Safety Report 4687942-7 (Version None)
Quarter: 2005Q2

REPORT INFORMATION
  Report Type: 
  Country: None (occurrence: None)
  Receive Date: 20050610
  Receipt Date: 20050601
  Transmission Date: 20051028
  Serious: Yes (Hospitalization)
  Sender: FDA-Public Use
  Company Number: GB-GLAXOSMITHKLINE-B0383126A

PATIENT
  Age: 82 Year
  Sex: Male

DRUGS (5)
  1. AVODART [Suspect]
     Indication: BENIGN PROSTATIC HYPERPLASIA
     Dosage: 500MCG PER DAY
     Route: 048
     Dates: end: 20050512
  2. FINASTERIDE [Suspect]
     Indication: BENIGN PROSTATIC HYPERPLASIA
     Dosage: 5MG PER DAY
     Route: 048
  3. VERAPAMIL [Concomitant]
     Dosage: 40MG PER DAY
     Route: 048
  4. WARFARIN SODIUM [Concomitant]
     Dosage: 5MG PER DAY
     Route: 048
  5. ISMN [Concomitant]
     Dosage: 60MG PER DAY
     Route: 048

REACTIONS (3)
  - CHEST PAIN [None]
  - COUGH [None]
  - DYSPNOEA [None]
